FAERS Safety Report 9919083 (Version 1)
Quarter: 2014Q1

REPORT INFORMATION
  Report Type: Spontaneous
  Country: US (occurrence: US)
  Receive Date: 20140224
  Receipt Date: 20140224
  Transmission Date: 20141002
  Serious: No
  Sender: FDA-Public Use
  Company Number: US-PFIZER INC-2014052728

PATIENT
  Age: 62 Year
  Sex: Female
  Weight: 68.03 kg

DRUGS (4)
  1. CHANTIX [Suspect]
     Indication: SMOKING CESSATION THERAPY
     Dosage: UNK
  2. CYMBALTA [Concomitant]
     Dosage: 60 MG, UNK
  3. VALIUM [Concomitant]
     Dosage: 10 MG, 2X/DAY
  4. LAMOTRIGINE [Concomitant]
     Dosage: 100 MG, UNK

REACTIONS (1)
  - Nightmare [Recovered/Resolved]
